FAERS Safety Report 12280357 (Version 2)
Quarter: 2016Q4

REPORT INFORMATION
  Report Type: Spontaneous
  Country: US (occurrence: US)
  Receive Date: 20160419
  Receipt Date: 20161110
  Transmission Date: 20170207
  Serious: No
  Sender: FDA-Public Use
  Company Number: US-AMGEN-USASL2016047959

PATIENT
  Age: 63 Year
  Sex: Female

DRUGS (1)
  1. ENBREL [Suspect]
     Active Substance: ETANERCEPT
     Indication: RHEUMATOID ARTHRITIS
     Dosage: 50 MG, QWK
     Route: 065
     Dates: start: 2015

REACTIONS (8)
  - Pain [Unknown]
  - Rash [Unknown]
  - Pruritus generalised [Unknown]
  - Swelling [Unknown]
  - Injection site reaction [Unknown]
  - Weight decreased [Unknown]
  - Headache [Unknown]
  - Burning sensation [Unknown]
